FAERS Safety Report 6391253-1 (Version None)
Quarter: 2009Q4

REPORT INFORMATION
  Report Type: 
  Country: None (occurrence: None)
  Receive Date: 20091006
  Receipt Date: 20091006
  Transmission Date: 20100525
  Serious: Yes (Hospitalization)
  Sender: FDA-Public Use
  Company Number: None

PATIENT
  Age: 1 Day
  Sex: Male
  Weight: 3.4 kg

DRUGS (1)
  1. FLUOXETINE [Suspect]
     Dosage: DURING PREGNANCY

REACTIONS (5)
  - ERYTHEMA [None]
  - HEART RATE DECREASED [None]
  - HYPOTONIA NEONATAL [None]
  - MATERNAL DRUGS AFFECTING FOETUS [None]
  - NEONATAL DISORDER [None]
